FAERS Safety Report 25566783 (Version 2)
Quarter: 2025Q3

REPORT INFORMATION
  Report Type: Spontaneous
  Country: US (occurrence: None)
  Receive Date: 20250716
  Receipt Date: 20250916
  Transmission Date: 20251020
  Serious: Yes (Hospitalization)
  Sender: ALKERMES
  Company Number: US-ALKERMES INC.-ALK-2025-001894

PATIENT
  Age: 54 Year
  Sex: Female

DRUGS (6)
  1. VIVITROL [Suspect]
     Active Substance: NALTREXONE
     Indication: Alcohol use disorder
     Dates: start: 20250617, end: 20250715
  2. CELECOXIB [Concomitant]
     Active Substance: CELECOXIB
     Indication: Arthralgia
  3. LAMICTAL [Concomitant]
     Active Substance: LAMOTRIGINE
     Indication: Seizure
  4. DEPAKOTE ER [Concomitant]
     Active Substance: DIVALPROEX SODIUM
     Indication: Seizure
  5. HYDROCHLOROTHIAZIDE\LISINOPRIL [Concomitant]
     Active Substance: HYDROCHLOROTHIAZIDE\LISINOPRIL
     Indication: Hypertension
  6. MIRTAZAPINE [Concomitant]
     Active Substance: MIRTAZAPINE
     Indication: Insomnia

REACTIONS (5)
  - Metabolic encephalopathy [Recovering/Resolving]
  - Stress [Recovered/Resolved]
  - Mental disorder [Recovered/Resolved]
  - Asthenia [Recovering/Resolving]
  - Alcohol use [Unknown]

NARRATIVE: CASE EVENT DATE: 20250601
